FAERS Safety Report 5094197-0 (Version None)
Quarter: 2006Q3

REPORT INFORMATION
  Report Type: 
  Country: None (occurrence: None)
  Receive Date: 20060830
  Receipt Date: 20060830
  Transmission Date: 20061208
  Serious: No
  Sender: FDA-Public Use
  Company Number: None

PATIENT
  Sex: Male

DRUGS (15)
  1. DAPSONE [Suspect]
     Indication: PNEUMOCYSTIS JIROVECI PNEUMONIA
     Dosage: 10 MG PO DAILY
     Route: 048
     Dates: start: 20060810, end: 20060817
  2. PRIMAQUINE [Suspect]
     Indication: PNEUMOCYSTIS JIROVECI PNEUMONIA
     Dosage: 26.3 MG PO DAILY
     Route: 048
     Dates: start: 20060808, end: 20060810
  3. REGLAN [Suspect]
     Dosage: 5 MG IVP ONCE
     Route: 040
     Dates: start: 20060810
  4. LOPRESSOR [Concomitant]
  5. PROTONIX [Concomitant]
  6. LASIX [Concomitant]
  7. ENOXAPARIN SODIUM [Concomitant]
  8. DECADRON [Concomitant]
  9. ROCEPHIN [Concomitant]
  10. CLINDOMYCIN [Concomitant]
  11. DRONABINOL [Concomitant]
  12. GABAPENTIN [Concomitant]
  13. LISINOPRIL [Concomitant]
  14. LORAZEPAM [Concomitant]
  15. ZOCOR [Concomitant]

REACTIONS (1)
  - METHAEMOGLOBINAEMIA [None]
